FAERS Safety Report 19031429 (Version 2)
Quarter: 2021Q2

REPORT INFORMATION
  Report Type: Report from Study
  Country: US (occurrence: US)
  Receive Date: 20210319
  Receipt Date: 20210420
  Transmission Date: 20210717
  Serious: No
  Sender: FDA-Public Use
  Company Number: US-KYOWAKIRIN-2021BKK004330

PATIENT

DRUGS (11)
  1. COVID?19 VACCINE NOS. [Suspect]
     Active Substance: COVID-19 VACCINE NOS
     Indication: PRODUCT USED FOR UNKNOWN INDICATION
     Dosage: UNK
     Route: 065
     Dates: start: 2021
  2. EXELON [Concomitant]
     Active Substance: RIVASTIGMINE TARTRATE
     Indication: BIPOLAR I DISORDER
     Dosage: 4.5 MG, DAILY
     Route: 065
  3. ONDANSETRON [Concomitant]
     Active Substance: ONDANSETRON
     Indication: NAUSEA
     Dosage: UNK, AS NEEDED
     Route: 065
  4. BACLOFEN. [Concomitant]
     Active Substance: BACLOFEN
     Indication: MYALGIA
     Dosage: 10 MG, AS NEEDED
     Route: 065
  5. VITAMIN D3 [Concomitant]
     Active Substance: CHOLECALCIFEROL
     Indication: VITAMIN D DEFICIENCY
     Dosage: 5000 IU
     Route: 065
  6. CANDESARTAN. [Concomitant]
     Active Substance: CANDESARTAN
     Indication: HYPERTENSION
     Dosage: 2 MG, TWICE A DAY
     Route: 065
  7. CRYSVITA [Suspect]
     Active Substance: BUROSUMAB-TWZA
     Indication: HEREDITARY HYPOPHOSPHATAEMIC RICKETS
     Dosage: 90 MG, EVERY 4 WEEKS
     Route: 058
     Dates: start: 201909
  8. CANDESARTAN. [Concomitant]
     Active Substance: CANDESARTAN
     Dosage: 4 MG, TWICE A DAY
     Route: 065
     Dates: start: 2021
  9. CAPLYTA [Suspect]
     Active Substance: LUMATEPERONE
     Indication: BIPOLAR I DISORDER
     Dosage: 42 MG, QD
     Route: 065
     Dates: start: 2021, end: 2021
  10. AMANTADINE. [Concomitant]
     Active Substance: AMANTADINE HYDROCHLORIDE
     Indication: BIPOLAR I DISORDER
     Dosage: 100 MG, QD
     Route: 065
  11. SYNTHROID [Concomitant]
     Active Substance: LEVOTHYROXINE SODIUM
     Indication: HYPOTHYROIDISM
     Dosage: 50 UG A DAY
     Route: 065

REACTIONS (9)
  - Dizziness [Unknown]
  - Pyrexia [Recovered/Resolved]
  - Weight fluctuation [Not Recovered/Not Resolved]
  - Fluid retention [Not Recovered/Not Resolved]
  - C-reactive protein increased [Unknown]
  - Nausea [Unknown]
  - Chills [Recovered/Resolved]
  - High density lipoprotein decreased [Unknown]
  - Somnolence [Unknown]

NARRATIVE: CASE EVENT DATE: 2021
